FAERS Safety Report 23755057 (Version 1)
Quarter: 2024Q2

REPORT INFORMATION
  Report Type: Spontaneous
  Country: US (occurrence: None)
  Receive Date: 20240418
  Receipt Date: 20240418
  Transmission Date: 20240715
  Serious: Yes (Death)
  Sender: FDA-Public Use
  Company Number: US-ROCHE-3543113

PATIENT
  Sex: Male

DRUGS (2)
  1. VABYSMO [Suspect]
     Active Substance: FARICIMAB\FARICIMAB-SVOA
     Indication: Neovascular age-related macular degeneration
     Dosage: RECEIVED VABUYSMO IN BOTH EYES (BILATERALLY)
     Route: 031
  2. AMLODIPINE [Concomitant]
     Active Substance: AMLODIPINE BESYLATE
     Indication: Blood pressure measurement

REACTIONS (1)
  - Death [Fatal]
